FAERS Safety Report 5871369-6 (Version None)
Quarter: 2008Q3

REPORT INFORMATION
  Report Type: 
  Country: None (occurrence: None)
  Receive Date: 20080905
  Receipt Date: 20080828
  Transmission Date: 20090109
  Serious: Yes (Hospitalization)
  Sender: FDA-Public Use
  Company Number: JP-BOEHRINGER INGELHEIM GMBH, GERMANY-2008-DE-05096GD

PATIENT
  Age: 58 Year
  Sex: Female

DRUGS (12)
  1. PRAMIPEXOLE DIHYDROCHLORIDE [Suspect]
     Indication: MULTIPLE SYSTEM ATROPHY
  2. PRAMIPEXOLE DIHYDROCHLORIDE [Suspect]
     Indication: PARKINSONISM
  3. AMANTADINE HCL [Concomitant]
     Indication: MULTIPLE SYSTEM ATROPHY
  4. AMANTADINE HCL [Concomitant]
     Indication: PARKINSONISM
  5. CARBIDOPA AND LEVODOPA [Concomitant]
     Indication: MULTIPLE SYSTEM ATROPHY
  6. CARBIDOPA AND LEVODOPA [Concomitant]
     Indication: PARKINSONISM
  7. SELEGILINE HCL [Concomitant]
     Indication: MULTIPLE SYSTEM ATROPHY
  8. SELEGILINE HCL [Concomitant]
     Indication: PARKINSONISM
  9. CABERGOLINE [Concomitant]
     Indication: MULTIPLE SYSTEM ATROPHY
  10. CABERGOLINE [Concomitant]
     Indication: PARKINSONISM
  11. TRIHEXYPHENIDYL HCL [Concomitant]
     Indication: MULTIPLE SYSTEM ATROPHY
  12. TRIHEXYPHENIDYL HCL [Concomitant]
     Indication: PARKINSONISM

REACTIONS (2)
  - DYSKINESIA [None]
  - INAPPROPRIATE ANTIDIURETIC HORMONE SECRETION [None]
